FAERS Safety Report 14265521 (Version 1)
Quarter: 2017Q4

REPORT INFORMATION
  Report Type: Spontaneous
  Country: US (occurrence: US)
  Receive Date: 20171208
  Receipt Date: 20171208
  Transmission Date: 20180321
  Serious: No
  Sender: FDA-Public Use
  Company Number: US-MYLANLABS-2017M1072804

PATIENT
  Age: 63 Year

DRUGS (1)
  1. PRASUGREL TABLETS [Suspect]
     Active Substance: PRASUGREL
     Indication: ISCHAEMIC HEART DISEASE PROPHYLAXIS
     Dosage: UNK
     Route: 048

REACTIONS (2)
  - Product storage error [Unknown]
  - No adverse event [Unknown]
